FAERS Safety Report 20069351 (Version 1)
Quarter: 2021Q4

REPORT INFORMATION
  Report Type: Spontaneous
  Country: US (occurrence: None)
  Receive Date: 20211112
  Receipt Date: 20211112
  Transmission Date: 20220303
  Serious: Yes (Death)
  Sender: FDA-Public Use
  Company Number: None

PATIENT
  Age: 75 Year
  Sex: Female
  Weight: 74.7 kg

DRUGS (1)
  1. XPOVIO [Suspect]
     Active Substance: SELINEXOR
     Indication: Plasma cell myeloma
     Dosage: OTHER FREQUENCY : EVERY WEEK;?
     Route: 048
     Dates: start: 20210917, end: 20211109

REACTIONS (1)
  - Death [None]

NARRATIVE: CASE EVENT DATE: 20211109
